FAERS Safety Report 12186395 (Version 1)
Quarter: 2016Q1

REPORT INFORMATION
  Report Type: Report from Study
  Country: US (occurrence: US)
  Receive Date: 20160317
  Receipt Date: 20160317
  Transmission Date: 20160526
  Serious: Yes (Death, Hospitalization)
  Sender: FDA-Public Use
  Company Number: US-ASTRAZENECA-2015SE64166

PATIENT
  Sex: Female

DRUGS (1)
  1. OLAPARIB [Suspect]
     Active Substance: OLAPARIB
     Indication: OVARIAN CANCER
     Route: 048
     Dates: start: 20150515

REACTIONS (5)
  - Death [Fatal]
  - Chills [Recovered/Resolved]
  - Pyrexia [Recovered/Resolved]
  - Rhinitis [Not Recovered/Not Resolved]
  - Peripheral swelling [Not Recovered/Not Resolved]
